FAERS Safety Report 5359218-6 (Version None)
Quarter: 2007Q2

REPORT INFORMATION
  Report Type: 
  Country: None (occurrence: None)
  Receive Date: 20070530
  Receipt Date: 20070329
  Transmission Date: 20071010
  Serious: No
  Sender: FDA-Public Use
  Company Number: 2007PV032664

PATIENT
  Age: 66 Year
  Sex: Female
  Weight: 106.1417 kg

DRUGS (1)
  1. BYETTA [Suspect]
     Indication: DIABETES MELLITUS NON-INSULIN-DEPENDENT
     Dosage: 5 MCG;BID;SC
     Route: 058
     Dates: start: 20070213, end: 20070315

REACTIONS (2)
  - DIARRHOEA [None]
  - WEIGHT INCREASED [None]
